FAERS Safety Report 14155891 (Version 4)
Quarter: 2019Q1

REPORT INFORMATION
  Report Type: Report from Study
  Country: CA (occurrence: CA)
  Receive Date: 20171103
  Receipt Date: 20190307
  Transmission Date: 20190417
  Serious: Yes (Hospitalization, Other)
  Sender: FDA-Public Use
  Company Number: CA-BRISTOL-MYERS SQUIBB COMPANY-BMS-2017-095997

PATIENT
  Age: 61 Year
  Sex: Female

DRUGS (1)
  1. ABATACEPT [Suspect]
     Active Substance: ABATACEPT
     Indication: RHEUMATOID ARTHRITIS
     Dosage: 750 MG, Q4WK
     Route: 042
     Dates: start: 20120511

REACTIONS (6)
  - Blood pressure increased [Unknown]
  - Skin laceration [Unknown]
  - Lung disorder [Not Recovered/Not Resolved]
  - Hospitalisation [Unknown]
  - Inappropriate schedule of product administration [Unknown]
  - Animal bite [Recovering/Resolving]

NARRATIVE: CASE EVENT DATE: 20180424
